FAERS Safety Report 16933080 (Version 1)
Quarter: 2019Q4

REPORT INFORMATION
  Report Type: Spontaneous
  Country: US (occurrence: US)
  Receive Date: 20191018
  Receipt Date: 20191018
  Transmission Date: 20200122
  Serious: Yes (Other)
  Sender: FDA-Public Use
  Company Number: US-AEGERION PHARMACEUTICAL, INC-AEGR004517

PATIENT
  Sex: Female

DRUGS (2)
  1. MYALEPT [Suspect]
     Active Substance: METRELEPTIN
     Indication: PRODUCT USED FOR UNKNOWN INDICATION
     Dosage: 72 UNITS, QD
     Dates: start: 20160802
  2. MYALEPT [Suspect]
     Active Substance: METRELEPTIN
     Dosage: UNK

REACTIONS (2)
  - Drug ineffective [Unknown]
  - Hepatomegaly [Unknown]
